FAERS Safety Report 6340121-X (Version None)
Quarter: 2009Q3

REPORT INFORMATION
  Report Type: 
  Country: None (occurrence: None)
  Receive Date: 20090902
  Receipt Date: 20090817
  Transmission Date: 20100115
  Serious: Yes (Other)
  Sender: FDA-Public Use
  Company Number: 2009AL002016

PATIENT
  Age: 78 Year
  Sex: Female

DRUGS (13)
  1. DIGOXIN [Suspect]
     Dosage: 0.25MG, DAILY, PO
     Route: 048
  2. LISINOPRIL [Concomitant]
  3. NIFEDICAL [Concomitant]
  4. METOPROLOL TARTRATE [Concomitant]
  5. LOVATATIN [Concomitant]
  6. LEVOTHYROXINE SODIUM [Concomitant]
  7. LORAZEPAM [Concomitant]
  8. HUMULIN R [Concomitant]
  9. ALBUTEROL [Concomitant]
  10. IPRATROPIUM [Concomitant]
  11. ASPIRIN [Concomitant]
  12. VIACTIV [Concomitant]
  13. NIFEDIPINE [Concomitant]

REACTIONS (11)
  - CAROTID ARTERY STENOSIS [None]
  - COUGH [None]
  - ECONOMIC PROBLEM [None]
  - FALL [None]
  - FREQUENT BOWEL MOVEMENTS [None]
  - ILL-DEFINED DISORDER [None]
  - INJURY [None]
  - OROPHARYNGEAL PAIN [None]
  - PAIN [None]
  - PULMONARY CONGESTION [None]
  - PYREXIA [None]
